FAERS Safety Report 16915283 (Version 1)
Quarter: 2019Q4

REPORT INFORMATION
  Report Type: Spontaneous
  Country: US (occurrence: US)
  Receive Date: 20191013
  Receipt Date: 20191013
  Transmission Date: 20200122
  Serious: Yes (Other)
  Sender: FDA-Public Use
  Company Number: None

PATIENT
  Age: 50 Year
  Sex: Female
  Weight: 88.45 kg

DRUGS (2)
  1. TOMMIE COPPER SPORT [Suspect]
     Active Substance: CAMPHOR (SYNTHETIC)\MENTHOL
  2. ESTROGEN PATCH [Concomitant]
     Active Substance: ESTRADIOL

REACTIONS (3)
  - Application site pain [None]
  - Application site scar [None]
  - Application site vesicles [None]

NARRATIVE: CASE EVENT DATE: 20191006
